FAERS Safety Report 19930957 (Version 3)
Quarter: 2021Q4

REPORT INFORMATION
  Report Type: Report from Study
  Country: CH (occurrence: CH)
  Receive Date: 20211008
  Receipt Date: 20211020
  Transmission Date: 20220303
  Serious: Yes (Hospitalization)
  Sender: FDA-Public Use
  Company Number: NVSC2021CH079880

PATIENT
  Age: 60 Year
  Sex: Male
  Weight: 80 kg

DRUGS (5)
  1. SECUKINUMAB [Suspect]
     Active Substance: SECUKINUMAB
     Indication: Hidradenitis
     Dosage: 300 MG, Q4W
     Route: 058
     Dates: start: 20210324
  2. METFORMIN [Concomitant]
     Active Substance: METFORMIN HYDROCHLORIDE
     Indication: Type 2 diabetes mellitus
     Dosage: UNK
     Route: 065
     Dates: start: 20210316
  3. NOVALGIN [Concomitant]
     Indication: Hidradenitis
     Dosage: UNK
     Route: 065
     Dates: start: 20181201
  4. PANTOPRAZOLE SODIUM [Concomitant]
     Active Substance: PANTOPRAZOLE SODIUM
     Indication: Prophylaxis
     Dosage: UNK
     Route: 065
     Dates: start: 20210325
  5. AMLODIPINE BESYLATE [Concomitant]
     Active Substance: AMLODIPINE BESYLATE
     Indication: Hypertension
     Dosage: UNK
     Route: 065
     Dates: start: 20210401

REACTIONS (1)
  - Pain [Recovered/Resolved]

NARRATIVE: CASE EVENT DATE: 20210401
